FAERS Safety Report 7004970-7 (Version None)
Quarter: 2010Q3

REPORT INFORMATION
  Report Type: 
  Country: None (occurrence: None)
  Receive Date: 20100920
  Receipt Date: 20100920
  Transmission Date: 20110219
  Serious: Yes (Hospitalization)
  Sender: FDA-Public Use
  Company Number: None

PATIENT
  Age: 52 Year
  Sex: Male
  Weight: 107.4 kg

DRUGS (3)
  1. LISINOPRIL [Suspect]
     Indication: HEPATIC CIRRHOSIS
     Dosage: 20MG DAILY PO
     Route: 048
     Dates: start: 20100902, end: 20100915
  2. LISINOPRIL [Suspect]
     Indication: HYPERTENSION
     Dosage: 20MG DAILY PO
     Route: 048
     Dates: start: 20100902, end: 20100915
  3. SPIRONOLACTONE [Suspect]
     Indication: PORTAL HYPERTENSION
     Dosage: 100MG DAILY PO
     Route: 048
     Dates: start: 20100902, end: 20100915

REACTIONS (1)
  - BLOOD POTASSIUM INCREASED [None]
